FAERS Safety Report 24670845 (Version 1)
Quarter: 2024Q4

REPORT INFORMATION
  Report Type: Spontaneous
  Country: CN (occurrence: CN)
  Receive Date: 20241127
  Receipt Date: 20241127
  Transmission Date: 20250114
  Serious: Yes (Hospitalization)
  Sender: GE HEALTHCARE
  Company Number: CN-GE HEALTHCARE-2024CSU013433

PATIENT
  Age: 52 Year
  Sex: Female

DRUGS (6)
  1. VISIPAQUE [Suspect]
     Active Substance: IODIXANOL
     Indication: Cardiac imaging procedure
     Dosage: 300 ML, TOTAL
     Route: 040
     Dates: start: 20241020, end: 20241020
  2. VISIPAQUE [Suspect]
     Active Substance: IODIXANOL
     Indication: Interventional procedure
  3. HEPARIN [Concomitant]
     Active Substance: HEPARIN SODIUM
     Dosage: 7000 IU
     Route: 042
     Dates: start: 20241020, end: 20241020
  4. NITROGLYCERIN [Concomitant]
     Active Substance: NITROGLYCERIN
     Dosage: 200 MCG
     Route: 022
     Dates: start: 20241020, end: 20241020
  5. DEXAMETHASONE [Concomitant]
     Active Substance: DEXAMETHASONE
     Dosage: 10 MG
     Route: 042
     Dates: start: 20241020, end: 20241020
  6. METOPROLOL [Concomitant]
     Active Substance: METOPROLOL
     Dosage: 10 MG
     Route: 065
     Dates: start: 20241020, end: 20241020

REACTIONS (4)
  - Gastrointestinal disorder [Recovered/Resolved]
  - Throat tightness [Recovered/Resolved]
  - Pyrexia [Recovered/Resolved]
  - Urticaria [Recovered/Resolved]

NARRATIVE: CASE EVENT DATE: 20241104
